FAERS Safety Report 15160482 (Version 1)
Quarter: 2018Q3

REPORT INFORMATION
  Report Type: Spontaneous
  Country: US (occurrence: US)
  Receive Date: 20180718
  Receipt Date: 20180718
  Transmission Date: 20181010
  Serious: Yes (Other)
  Sender: FDA-Public Use
  Company Number: US-PFIZER INC-2018285620

PATIENT
  Age: 42 Year
  Sex: Male

DRUGS (1)
  1. LYRICA [Suspect]
     Active Substance: PREGABALIN
     Indication: FIBROMYALGIA
     Dosage: 50 MG, 2X/DAY (ONCE IN THE MORNING WHEN I GET UP AND ONCE IN THE EVENING WHEN I GO TO BED)
     Dates: start: 201803

REACTIONS (11)
  - Neuropathy peripheral [Unknown]
  - Abdominal distension [Unknown]
  - Hypokinesia [Unknown]
  - Memory impairment [Unknown]
  - Loss of personal independence in daily activities [Unknown]
  - Gastric disorder [Unknown]
  - Feeling abnormal [Unknown]
  - Overweight [Unknown]
  - Visual impairment [Unknown]
  - Skin burning sensation [Unknown]
  - Blood pressure fluctuation [Unknown]
